FAERS Safety Report 8829769 (Version 2)
Quarter: 2013Q1

REPORT INFORMATION
  Report Type: Spontaneous
  Country: PT (occurrence: PT)
  Receive Date: 20121008
  Receipt Date: 20130207
  Transmission Date: 20140127
  Serious: Yes (Hospitalization, Other)
  Sender: FDA-Public Use
  Company Number: PT-BAYER-2012-011585

PATIENT
  Age: 33 Year
  Sex: Female

DRUGS (1)
  1. MIRENA [Suspect]
     Indication: CONTRACEPTION
     Dosage: 20 MCG/24HR, CONT
     Route: 015
     Dates: start: 20100517, end: 20120515

REACTIONS (5)
  - Uterine perforation [Recovered/Resolved]
  - Pregnancy with contraceptive device [Recovered/Resolved]
  - Nausea [Recovered/Resolved]
  - Complication of device removal [Recovered/Resolved]
  - Amniotic fluid volume decreased [None]
